FAERS Safety Report 23367635 (Version 1)
Quarter: 2024Q1

REPORT INFORMATION
  Report Type: Report from Study
  Country: US (occurrence: US)
  Receive Date: 20240104
  Receipt Date: 20240104
  Transmission Date: 20240409
  Serious: Yes (Hospitalization)
  Sender: FDA-Public Use
  Company Number: US-BIOGEN-2024BI01243261

PATIENT
  Age: 26 Year
  Sex: Female

DRUGS (6)
  1. VUMERITY [Suspect]
     Active Substance: DIROXIMEL FUMARATE
     Indication: Multiple sclerosis
     Dosage: 231 MG CAPSULE BY MOUTH TWICE DAILY FOR 7DAYS STATING 11/30/23, THEN 2 CAPSULES OF 231MG BY MOUTH...
     Route: 050
     Dates: start: 20231130
  2. VUMERITY [Suspect]
     Active Substance: DIROXIMEL FUMARATE
     Dosage: 231 MG CAPSULE BY MOUTH TWICE DAILY FOR 7DAYS STATING 11/30/23, THEN 2 CAPSULES OF 231MG BY MOUTH...
     Route: 050
     Dates: start: 20231207
  3. VUMERITY [Suspect]
     Active Substance: DIROXIMEL FUMARATE
     Dosage: 231 MG CAPSULE BY MOUTH TWICE DAILY FOR 7DAYS STATING 11/30/23, THEN 2 CAPSULES OF 231MG BY MOUTH...
     Route: 050
     Dates: start: 20231217
  4. VUMERITY [Suspect]
     Active Substance: DIROXIMEL FUMARATE
     Dosage: 231 MG CAPSULE BY MOUTH TWICE DAILY FOR 7DAYS STATING 11/30/23, THEN 2 CAPSULES OF 231MG BY MOUTH...
     Route: 050
     Dates: start: 20231217
  5. VUMERITY [Suspect]
     Active Substance: DIROXIMEL FUMARATE
     Dosage: 231 MG CAPSULE BY MOUTH TWICE DAILY FOR 7DAYS STATING 11/30/23, THEN 2 CAPSULES OF 231MG BY MOUTH...
     Route: 050
     Dates: start: 20231223
  6. VUMERITY [Suspect]
     Active Substance: DIROXIMEL FUMARATE
     Route: 050
     Dates: start: 20231206

REACTIONS (2)
  - Multiple sclerosis relapse [Unknown]
  - Rash pruritic [Unknown]

NARRATIVE: CASE EVENT DATE: 20231227
